FAERS Safety Report 23992020 (Version 3)
Quarter: 2024Q2

REPORT INFORMATION
  Report Type: Report from Study
  Country: US (occurrence: US)
  Receive Date: 20240620
  Receipt Date: 20240625
  Transmission Date: 20240715
  Serious: Yes (Hospitalization)
  Sender: FDA-Public Use
  Company Number: US-ROCHE-10000002237

PATIENT
  Age: 12 Year
  Sex: Male
  Weight: 61 kg

DRUGS (2)
  1. EVRYSDI [Suspect]
     Active Substance: RISDIPLAM
     Indication: Spinal muscular atrophy
     Route: 065
  2. EVRYSDI [Suspect]
     Active Substance: RISDIPLAM
     Indication: Spinal muscular atrophy
     Dosage: 100 ML BOTTLE
     Route: 065

REACTIONS (2)
  - Spinal fusion surgery [Unknown]
  - Acquired Von Willebrand^s disease [Unknown]

NARRATIVE: CASE EVENT DATE: 20240408
